FAERS Safety Report 8831700 (Version 2)
Quarter: 2012Q4

REPORT INFORMATION
  Report Type: Report from Study
  Country: CA (occurrence: CA)
  Receive Date: 20121009
  Receipt Date: 20121015
  Transmission Date: 20130627
  Serious: Yes (Hospitalization)
  Sender: FDA-Public Use
  Company Number: CA-ROCHE-1138680

PATIENT
  Age: 32 Year
  Sex: Female
  Weight: 68.1 kg

DRUGS (10)
  1. RITUXIMAB [Suspect]
     Indication: MYASTHENIA GRAVIS
     Dosage: Last dose prior to SAE on 24/May/2012
     Route: 042
     Dates: start: 20120503
  2. IMURAN [Concomitant]
  3. PREDNISONE [Concomitant]
  4. MESTINON [Concomitant]
  5. CITALOPRAM [Concomitant]
  6. VALTREX [Concomitant]
     Route: 065
  7. PALAFER [Concomitant]
  8. VITAMIN B12 [Concomitant]
  9. ACTONEL [Concomitant]
  10. NAPROXEN [Concomitant]
     Route: 065

REACTIONS (4)
  - Myasthenia gravis [Unknown]
  - Pyrexia [Recovered/Resolved]
  - Rash [Recovered/Resolved]
  - Diarrhoea [Unknown]
